FAERS Safety Report 17951759 (Version 1)
Quarter: 2020Q2

REPORT INFORMATION
  Report Type: Spontaneous
  Country: US (occurrence: US)
  Receive Date: 20200626
  Receipt Date: 20200626
  Transmission Date: 20200714
  Serious: Yes (Life-Threatening, Disabling)
  Sender: FDA-Public Use
  Company Number: US-TEVA-2020-US-1794585

PATIENT
  Sex: Male

DRUGS (2)
  1. AMIODARONE HYDROCHLORIDE. [Suspect]
     Active Substance: AMIODARONE HYDROCHLORIDE
     Indication: ATRIAL FIBRILLATION
     Route: 048
  2. AMIODARONE HYDROCHLORIDE. [Suspect]
     Active Substance: AMIODARONE HYDROCHLORIDE
     Indication: ATRIAL FIBRILLATION
     Route: 048

REACTIONS (14)
  - Visual field defect [Unknown]
  - Vitreous floaters [Unknown]
  - Corneal disorder [Unknown]
  - Blindness [Unknown]
  - Dyspnoea exertional [Unknown]
  - Eye pain [Unknown]
  - Optic neuropathy [Unknown]
  - Cataract [Unknown]
  - Impaired quality of life [Unknown]
  - Fatigue [Unknown]
  - Visual impairment [Unknown]
  - Eye irritation [Unknown]
  - Deposit eye [Unknown]
  - Off label use [Unknown]

NARRATIVE: CASE EVENT DATE: 201612
